FAERS Safety Report 13776235 (Version 1)
Quarter: 2017Q3

REPORT INFORMATION
  Report Type: Spontaneous
  Country: AT (occurrence: AT)
  Receive Date: 20170721
  Receipt Date: 20170721
  Transmission Date: 20171127
  Serious: Yes (Life-Threatening)
  Sender: FDA-Public Use
  Company Number: AT-TEVA-788090ISR

PATIENT
  Age: 78 Year
  Sex: Female
  Weight: 65 kg

DRUGS (3)
  1. MEXALEN 500MG [Concomitant]
     Indication: PAIN
     Dosage: 1-1-1 PER ORAL
     Route: 048
     Dates: start: 20170704
  2. ALLOPURINOL. [Suspect]
     Active Substance: ALLOPURINOL
     Indication: BLOOD URIC ACID
     Dates: start: 20170705, end: 20170705
  3. CEPHALOBENE 500MG - FILMTABLETTEN [Concomitant]
     Indication: RESPIRATORY TRACT INFECTION
     Dosage: 1000 MILLIGRAM DAILY; 1-0-1 PER ORAL
     Route: 048
     Dates: start: 20170704

REACTIONS (1)
  - Toxic epidermal necrolysis [Not Recovered/Not Resolved]

NARRATIVE: CASE EVENT DATE: 20170705
